FAERS Safety Report 4899370-X (Version None)
Quarter: 2006Q1

REPORT INFORMATION
  Report Type: 
  Country: None (occurrence: None)
  Receive Date: 20060131
  Receipt Date: 20060118
  Transmission Date: 20060701
  Serious: Yes (Hospitalization)
  Sender: FDA-Public Use
  Company Number: 2006011103

PATIENT
  Age: 75 Year
  Sex: Male

DRUGS (9)
  1. LINEZOLID TABLET (LINEZOLID) [Suspect]
     Indication: STAPHYLOCOCCAL OSTEOMYELITIS
     Dosage: 1200 MG (600 MG, 2 IN 1 D), ORAL
     Route: 048
     Dates: start: 20030101
  2. INSULIN [Concomitant]
  3. FUROSEMIDE [Concomitant]
  4. METOLAZONE [Concomitant]
  5. LEVOTHYROXINE SODIUM [Concomitant]
  6. FERROUS GLUCONATE (FERROUS GLUCONATE) [Concomitant]
  7. GLYCERYL TRINITRATE (GLYCERYL TRINITRATE) [Concomitant]
  8. METOPROLOL (METOPROLOL) [Concomitant]
  9. ASPIRIN [Concomitant]

REACTIONS (8)
  - DECREASED APPETITE [None]
  - DEHYDRATION [None]
  - PANCYTOPENIA [None]
  - PETECHIAE [None]
  - POLYURIA [None]
  - RENAL FAILURE ACUTE [None]
  - UNEVALUABLE EVENT [None]
  - VOMITING [None]
